FAERS Safety Report 13158334 (Version 3)
Quarter: 2017Q2

REPORT INFORMATION
  Report Type: Spontaneous
  Country: JP (occurrence: JP)
  Receive Date: 20170127
  Receipt Date: 20170405
  Transmission Date: 20170830
  Serious: Yes (Life-Threatening)
  Sender: FDA-Public Use
  Company Number: JP-BRACCO-010872

PATIENT
  Age: 69 Year
  Sex: Female
  Weight: 51 kg

DRUGS (3)
  1. PROHANCE [Suspect]
     Active Substance: GADOTERIDOL
     Indication: NUCLEAR MAGNETIC RESONANCE IMAGING
     Route: 042
     Dates: start: 20170119, end: 20170119
  2. HEPAFLUSH [Concomitant]
     Active Substance: HEPARIN SODIUM
     Dates: start: 20170119
  3. CONSTAN [Concomitant]
     Active Substance: ALPRAZOLAM

REACTIONS (1)
  - Anaphylactic shock [Recovered/Resolved]

NARRATIVE: CASE EVENT DATE: 20170119
